FAERS Safety Report 11507416 (Version 1)
Quarter: 2015Q3

REPORT INFORMATION
  Report Type: Spontaneous
  Country: FR (occurrence: FR)
  Receive Date: 20150915
  Receipt Date: 20150915
  Transmission Date: 20151125
  Serious: Yes (Other)
  Sender: FDA-Public Use
  Company Number: FR-SA-2015SA134854

PATIENT
  Age: 70 Year
  Sex: Male

DRUGS (16)
  1. INEXIUM [Concomitant]
     Active Substance: ESOMEPRAZOLE
     Route: 048
  2. TARDYFERON [Concomitant]
     Active Substance: FERROUS SULFATE\FOLIC ACID
     Route: 048
  3. GENTAMICIN. [Concomitant]
     Active Substance: GENTAMICIN
     Dates: start: 20150619, end: 20150630
  4. BRISTOPEN [Suspect]
     Active Substance: OXACILLIN SODIUM
     Dosage: FORM: POWDER AND SOLUTION FOR INJECTABLE PREPARATION?ROUTE: IV INFUSION?FREQUENCY: 6 TIMES A DAY
     Dates: start: 20150625, end: 20150713
  5. AMLOR [Concomitant]
     Active Substance: AMLODIPINE BESYLATE
     Route: 048
  6. AMIODARONE [Concomitant]
     Active Substance: AMIODARONE
     Dosage: FREQUENXY: 200 MG, 5 IN 7 DAYS
     Route: 048
  7. ZOPICLONE [Concomitant]
     Active Substance: ZOPICLONE
     Route: 048
  8. NOVONORM [Concomitant]
     Active Substance: REPAGLINIDE
     Route: 048
  9. PRADAXA [Concomitant]
     Active Substance: DABIGATRAN ETEXILATE MESYLATE
     Route: 048
  10. RIFADINE [Suspect]
     Active Substance: RIFAMPIN
     Dosage: ROUTE: INTRAVENOUS (INFUSION)
     Dates: start: 20150627
  11. HYDROCHLOROTHIAZIDE. [Concomitant]
     Active Substance: HYDROCHLOROTHIAZIDE
     Route: 048
  12. RIFADINE [Suspect]
     Active Substance: RIFAMPIN
     Dosage: ROUTE: INTRAVENOUS (INFUSION)
     Dates: start: 20150706, end: 20150713
  13. IRBESARTAN. [Concomitant]
     Active Substance: IRBESARTAN
     Route: 048
  14. METFORMIN [Concomitant]
     Active Substance: METFORMIN HYDROCHLORIDE
     Route: 048
  15. FUNGIZONE [Concomitant]
     Active Substance: AMPHOTERICIN B
     Route: 002
  16. PRAVASTATIN SODIUM. [Concomitant]
     Active Substance: PRAVASTATIN SODIUM
     Route: 048

REACTIONS (2)
  - Hepatic enzyme increased [Recovered/Resolved]
  - Bicytopenia [Recovered/Resolved]

NARRATIVE: CASE EVENT DATE: 20150709
